FAERS Safety Report 10651138 (Version 1)
Quarter: 2014Q4

REPORT INFORMATION
  Report Type: Spontaneous
  Country: US (occurrence: US)
  Receive Date: 20141215
  Receipt Date: 20141215
  Transmission Date: 20150529
  Serious: No
  Sender: FDA-Public Use
  Company Number: US-BIOGENIDEC-2014BI130970

PATIENT
  Sex: Female

DRUGS (1)
  1. TECFIDERA [Suspect]
     Active Substance: DIMETHYL FUMARATE
     Indication: MULTIPLE SCLEROSIS
     Route: 048
     Dates: start: 201404

REACTIONS (7)
  - Peripheral swelling [Unknown]
  - Feeling hot [Unknown]
  - Pruritus [Unknown]
  - Rash macular [Unknown]
  - Erythema [Unknown]
  - Chest discomfort [Unknown]
  - Swelling face [Unknown]

NARRATIVE: CASE EVENT DATE: 2014
